FAERS Safety Report 4505928-X (Version None)
Quarter: 2004Q4

REPORT INFORMATION
  Report Type: 
  Country: None (occurrence: None)
  Receive Date: 20041119
  Receipt Date: 20041110
  Transmission Date: 20050328
  Serious: Yes (Other)
  Sender: FDA-Public Use
  Company Number: PHNU2004DE03823

PATIENT
  Sex: Female

DRUGS (1)
  1. ZOMETA [Suspect]
     Indication: BREAST CANCER FEMALE
     Dosage: 1 DF, ONCE/SINGLE
     Route: 042
     Dates: start: 20040901, end: 20040901

REACTIONS (2)
  - CONVULSION [None]
  - HYPOCALCAEMIA [None]
